FAERS Safety Report 6663764-2 (Version None)
Quarter: 2010Q2

REPORT INFORMATION
  Report Type: 
  Country: None (occurrence: None)
  Receive Date: 20100401
  Receipt Date: 20100323
  Transmission Date: 20101027
  Serious: Yes (Death, Other)
  Sender: FDA-Public Use
  Company Number: DE-GENZYME-CLOF-1000891

PATIENT
  Sex: Male
  Weight: 65 kg

DRUGS (10)
  1. EVOLTRA [Suspect]
     Indication: ACUTE MYELOID LEUKAEMIA
     Dosage: 30 MG/M2, QDX5
     Route: 042
     Dates: start: 20100226, end: 20100302
  2. PANTOPRAZOLE SODIUM [Concomitant]
     Indication: PROPHYLAXIS
     Dosage: 40 MG, UNK
     Route: 065
     Dates: start: 20100206, end: 20100317
  3. VIGANTOLETTEN [Concomitant]
     Indication: VITAMIN D DEFICIENCY
     Dosage: 1 G, UNK
     Route: 065
     Dates: start: 20100206, end: 20100316
  4. TRAMAL [Concomitant]
     Indication: PAIN
     Dosage: 10 NG, UNK
     Route: 065
     Dates: start: 20100206, end: 20100305
  5. CLOTRIMAZOLE [Concomitant]
     Indication: DRUG USE FOR UNKNOWN INDICATION
     Dosage: 20 MG, UNK
     Route: 065
     Dates: end: 20100304
  6. FLUCONAZOLE [Concomitant]
     Indication: DRUG USE FOR UNKNOWN INDICATION
     Dosage: 200 MG, UNK
     Route: 048
  7. CORTISON [Concomitant]
     Indication: DRUG USE FOR UNKNOWN INDICATION
  8. PIPERACILLIN AND TAZOBACTAM [Concomitant]
     Indication: DRUG USE FOR UNKNOWN INDICATION
  9. TORSEMIDE [Concomitant]
     Indication: ANURIA
     Dosage: 100 MG, UNK
     Route: 065
     Dates: start: 20100309, end: 20100314
  10. AMLODIPINE [Concomitant]
     Indication: HYPERTENSION
     Dosage: UNK
     Dates: start: 20100307, end: 20100313

REACTIONS (6)
  - BLISTER [None]
  - C-REACTIVE PROTEIN INCREASED [None]
  - FATIGUE [None]
  - HEPATORENAL SYNDROME [None]
  - PALMAR-PLANTAR ERYTHRODYSAESTHESIA SYNDROME [None]
  - PYREXIA [None]
